FAERS Safety Report 4596277-2 (Version None)
Quarter: 2005Q1

REPORT INFORMATION
  Report Type: 
  Country: None (occurrence: None)
  Receive Date: 20050224
  Receipt Date: 20050214
  Transmission Date: 20050727
  Serious: Yes (Other)
  Sender: FDA-Public Use
  Company Number: A-CH2004-07486

PATIENT
  Age: 20 Month
  Sex: Male
  Weight: 12.5 kg

DRUGS (4)
  1. TRACLEER [Suspect]
     Indication: PULMONARY HYPERTENSION
     Dosage: 15.625 MG, BID
     Dates: start: 20040915
  2. BUSULFAN [Concomitant]
  3. URSOLVAN-200 (URSODEOXYCHOLIC ACID) [Concomitant]
  4. BACTRIM [Concomitant]

REACTIONS (4)
  - DEHYDRATION [None]
  - DIARRHOEA [None]
  - GASTROENTERITIS ROTAVIRUS [None]
  - HYPERNATRAEMIA [None]
